FAERS Safety Report 6474378-1 (Version None)
Quarter: 2009Q4

REPORT INFORMATION
  Report Type: 
  Country: None (occurrence: None)
  Receive Date: 20091204
  Receipt Date: 20091124
  Transmission Date: 20100525
  Serious: Yes (Death)
  Sender: FDA-Public Use
  Company Number: NL-GENENTECH-295053

PATIENT
  Age: 49 Year
  Sex: Female

DRUGS (1)
  1. METALYSE [Suspect]
     Indication: PULMONARY EMBOLISM
     Dosage: 8000 U, SINGLE
     Route: 042

REACTIONS (4)
  - CARDIAC ARREST [None]
  - HEPATIC RUPTURE [None]
  - INTRA-ABDOMINAL HAEMORRHAGE [None]
  - SPLENIC RUPTURE [None]
